FAERS Safety Report 9217628 (Version 2)
Quarter: 2013Q2

REPORT INFORMATION
  Report Type: Spontaneous
  Country: US (occurrence: US)
  Receive Date: 20130408
  Receipt Date: 20130502
  Transmission Date: 20140414
  Serious: Yes (Other)
  Sender: FDA-Public Use
  Company Number: US-BAYER-2013-042706

PATIENT
  Age: 53 Year
  Sex: Female
  Weight: 88.44 kg

DRUGS (9)
  1. MIRENA [Suspect]
     Indication: MENORRHAGIA
     Dosage: 20 MCG/24HR, CONT
     Route: 015
     Dates: start: 20130110, end: 20130411
  2. MIRENA [Suspect]
     Indication: MENORRHAGIA
  3. CALCIUM [Concomitant]
     Dosage: 1000 MG, UNK, DAILY
  4. FERROUS SULFATE [Concomitant]
     Dosage: 650 MG, UNK, DAILY
  5. VITAMIN D2 [Concomitant]
     Dosage: DAILY
  6. KLOR-CON M10 [Concomitant]
     Dosage: DAILY
  7. ZESTRIL [Concomitant]
     Dosage: 2.5 MG, UNK, DAILY
  8. LASIX [Concomitant]
     Dosage: 20 MG, UNK, DAILY
  9. AMBIEN [Concomitant]
     Dosage: UNK UNK, PRN

REACTIONS (3)
  - Genital haemorrhage [None]
  - Pain [None]
  - Device expulsion [None]
